FAERS Safety Report 18596813 (Version 3)
Quarter: 2021Q1

REPORT INFORMATION
  Report Type: Spontaneous
  Country: US (occurrence: US)
  Receive Date: 20201209
  Receipt Date: 20210104
  Transmission Date: 20210419
  Serious: No
  Sender: FDA-Public Use
  Company Number: US-BIOGEN-2020BI00902729

PATIENT
  Age: 60 Year
  Sex: Female

DRUGS (3)
  1. TECFIDERA [Suspect]
     Active Substance: DIMETHYL FUMARATE
     Dosage: MAINTENANCE DOSE
     Route: 065
     Dates: start: 20200724, end: 20201204
  2. TECFIDERA [Suspect]
     Active Substance: DIMETHYL FUMARATE
     Indication: MULTIPLE SCLEROSIS
     Route: 065
     Dates: start: 20130619, end: 20130701
  3. TECFIDERA [Suspect]
     Active Substance: DIMETHYL FUMARATE
     Dosage: MAINTENANCE DOSE
     Route: 048
     Dates: start: 20200725

REACTIONS (20)
  - Pain [Unknown]
  - Blood iron decreased [Unknown]
  - Intervertebral disc protrusion [Unknown]
  - Gastrointestinal disorder [Unknown]
  - Flushing [Recovered/Resolved]
  - Paraesthesia [Unknown]
  - Rash [Not Recovered/Not Resolved]
  - Stress [Not Recovered/Not Resolved]
  - Sensory disturbance [Unknown]
  - Back injury [Not Recovered/Not Resolved]
  - Temperature intolerance [Unknown]
  - Eye pain [Not Recovered/Not Resolved]
  - Gastrointestinal pain [Unknown]
  - Pruritus [Recovered/Resolved]
  - Back pain [Not Recovered/Not Resolved]
  - Cystitis [Unknown]
  - Kidney infection [Unknown]
  - Multiple sclerosis relapse [Unknown]
  - Hepatic enzyme increased [Not Recovered/Not Resolved]
  - Anger [Not Recovered/Not Resolved]

NARRATIVE: CASE EVENT DATE: 202008
